FAERS Safety Report 18818169 (Version 1)
Quarter: 2021Q1

REPORT INFORMATION
  Report Type: Spontaneous
  Country: CN (occurrence: CN)
  Receive Date: 20210202
  Receipt Date: 20210202
  Transmission Date: 20210419
  Serious: Yes (Other)
  Sender: FDA-Public Use
  Company Number: CN-ROCHE-2758547

PATIENT
  Age: 47 Year
  Sex: Male

DRUGS (57)
  1. AVASTIN [Suspect]
     Active Substance: BEVACIZUMAB
     Dosage: DAY 1
     Route: 065
     Dates: start: 20200616
  2. CALCIUM FOLINATE [Concomitant]
     Active Substance: LEUCOVORIN CALCIUM
     Indication: ADENOCARCINOMA OF COLON
     Dosage: DAY1
     Dates: start: 20200220
  3. CALCIUM FOLINATE [Concomitant]
     Active Substance: LEUCOVORIN CALCIUM
     Dosage: DAY1
     Dates: start: 20200305
  4. CALCIUM FOLINATE [Concomitant]
     Active Substance: LEUCOVORIN CALCIUM
     Dosage: DAY1
     Dates: start: 20200404
  5. FLUOROURACIL. [Concomitant]
     Active Substance: FLUOROURACIL
     Dosage: DAY1
     Dates: start: 20200404
  6. FLUOROURACIL. [Concomitant]
     Active Substance: FLUOROURACIL
     Dosage: DAY1
     Dates: start: 20200616
  7. FLUOROURACIL. [Concomitant]
     Active Substance: FLUOROURACIL
     Dosage: DAY1
     Dates: start: 20200726
  8. FLUOROURACIL. [Concomitant]
     Active Substance: FLUOROURACIL
     Dosage: DAY1
     Dates: start: 20201014
  9. FLUOROURACIL. [Concomitant]
     Active Substance: FLUOROURACIL
     Dosage: DAY1
     Dates: start: 20201104
  10. FLUOROURACIL. [Concomitant]
     Active Substance: FLUOROURACIL
     Dosage: CONTINUOUS FOR 46 HOURS
     Route: 042
     Dates: start: 20200305
  11. AVASTIN [Suspect]
     Active Substance: BEVACIZUMAB
     Dosage: DAY 1
     Route: 065
     Dates: start: 20200512
  12. CALCIUM FOLINATE [Concomitant]
     Active Substance: LEUCOVORIN CALCIUM
     Dosage: DAY1
     Dates: start: 20200516
  13. FLUOROURACIL. [Concomitant]
     Active Substance: FLUOROURACIL
     Dosage: DAY1
     Dates: start: 20200707
  14. FLUOROURACIL. [Concomitant]
     Active Substance: FLUOROURACIL
     Dosage: CONTINUOUS FOR 46 HOURS
     Route: 042
     Dates: start: 20200726
  15. AVASTIN [Suspect]
     Active Substance: BEVACIZUMAB
     Dosage: DAY 1
     Route: 065
     Dates: start: 20200320
  16. AVASTIN [Suspect]
     Active Substance: BEVACIZUMAB
     Dosage: DAY1
     Route: 065
     Dates: start: 20201014
  17. OXALIPLATIN. [Concomitant]
     Active Substance: OXALIPLATIN
     Dosage: DAY1
     Dates: start: 20200424
  18. OXALIPLATIN. [Concomitant]
     Active Substance: OXALIPLATIN
     Dosage: DAY1
     Dates: start: 20200512
  19. OXALIPLATIN. [Concomitant]
     Active Substance: OXALIPLATIN
     Dosage: DAY1
     Dates: start: 20200616
  20. CALCIUM FOLINATE [Concomitant]
     Active Substance: LEUCOVORIN CALCIUM
     Dosage: DAY1
     Dates: start: 20200424
  21. FLUOROURACIL. [Concomitant]
     Active Substance: FLUOROURACIL
     Dosage: CONTINUOUS FOR 46 HOURS
     Route: 042
     Dates: start: 20200220
  22. FLUOROURACIL. [Concomitant]
     Active Substance: FLUOROURACIL
     Dosage: CONTINUOUS FOR 46 HOURS
     Route: 042
     Dates: start: 20200320
  23. FLUOROURACIL. [Concomitant]
     Active Substance: FLUOROURACIL
     Dosage: CONTINUOUS FOR 46 HOURS
     Route: 042
     Dates: start: 20200424
  24. FLUOROURACIL. [Concomitant]
     Active Substance: FLUOROURACIL
     Dosage: CONTINUOUS FOR 46 HOURS
     Route: 042
     Dates: start: 20200512
  25. AVASTIN [Suspect]
     Active Substance: BEVACIZUMAB
     Dosage: DAY 1
     Route: 065
     Dates: start: 20200404
  26. OXALIPLATIN. [Concomitant]
     Active Substance: OXALIPLATIN
     Dosage: DAY1
     Dates: start: 20200320
  27. OXALIPLATIN. [Concomitant]
     Active Substance: OXALIPLATIN
     Dosage: DAY1
     Dates: start: 20201014
  28. CALCIUM FOLINATE [Concomitant]
     Active Substance: LEUCOVORIN CALCIUM
     Dosage: DAY1
     Dates: start: 20200320
  29. CALCIUM FOLINATE [Concomitant]
     Active Substance: LEUCOVORIN CALCIUM
     Dosage: DAY1
     Dates: start: 20200530
  30. CALCIUM FOLINATE [Concomitant]
     Active Substance: LEUCOVORIN CALCIUM
     Dosage: DAY1
     Dates: start: 20200707
  31. CALCIUM FOLINATE [Concomitant]
     Active Substance: LEUCOVORIN CALCIUM
     Dosage: DAY1
     Dates: start: 20200726
  32. OXALIPLATIN. [Concomitant]
     Active Substance: OXALIPLATIN
     Dosage: DAY1
     Dates: start: 20200305
  33. CALCIUM FOLINATE [Concomitant]
     Active Substance: LEUCOVORIN CALCIUM
     Dosage: DAY1
     Dates: start: 20201104
  34. FLUOROURACIL. [Concomitant]
     Active Substance: FLUOROURACIL
     Dosage: DAY1
     Dates: start: 20200305
  35. FLUOROURACIL. [Concomitant]
     Active Substance: FLUOROURACIL
     Dosage: DAY1
     Dates: start: 20200424
  36. FLUOROURACIL. [Concomitant]
     Active Substance: FLUOROURACIL
     Dosage: DAY1
     Dates: start: 20200512
  37. FLUOROURACIL. [Concomitant]
     Active Substance: FLUOROURACIL
     Dosage: CONTINUOUS FOR 46 HOURS
     Route: 042
     Dates: start: 20200530
  38. AVASTIN [Suspect]
     Active Substance: BEVACIZUMAB
     Indication: ADENOCARCINOMA OF COLON
     Dosage: DAY1
     Route: 065
     Dates: start: 20200305
  39. AVASTIN [Suspect]
     Active Substance: BEVACIZUMAB
     Dosage: DAY 1
     Route: 065
     Dates: start: 20200424
  40. AVASTIN [Suspect]
     Active Substance: BEVACIZUMAB
     Dosage: DAY 1
     Route: 065
     Dates: start: 20200530
  41. OXALIPLATIN. [Concomitant]
     Active Substance: OXALIPLATIN
     Indication: ADENOCARCINOMA OF COLON
     Dosage: DAY1
     Dates: start: 20200220
  42. OXALIPLATIN. [Concomitant]
     Active Substance: OXALIPLATIN
     Dosage: DAY1
     Dates: start: 20200530
  43. OXALIPLATIN. [Concomitant]
     Active Substance: OXALIPLATIN
     Dosage: DAY1
     Dates: start: 20200707
  44. OXALIPLATIN. [Concomitant]
     Active Substance: OXALIPLATIN
     Dosage: DAY1
     Dates: start: 20201104
  45. OXALIPLATIN. [Concomitant]
     Active Substance: OXALIPLATIN
     Dosage: DAY1
     Dates: start: 20200726
  46. CALCIUM FOLINATE [Concomitant]
     Active Substance: LEUCOVORIN CALCIUM
     Dosage: DAY1
     Dates: start: 20200512
  47. FLUOROURACIL. [Concomitant]
     Active Substance: FLUOROURACIL
     Indication: ADENOCARCINOMA OF COLON
     Dosage: DAY1
     Dates: start: 20200220
  48. FLUOROURACIL. [Concomitant]
     Active Substance: FLUOROURACIL
     Dosage: CONTINUOUS FOR 46 HOURS
     Route: 042
     Dates: start: 20200707
  49. AVASTIN [Suspect]
     Active Substance: BEVACIZUMAB
     Dosage: DAY 1
     Route: 065
     Dates: start: 20201104
  50. CALCIUM FOLINATE [Concomitant]
     Active Substance: LEUCOVORIN CALCIUM
     Dosage: DAY1
     Dates: start: 20201014
  51. FLUOROURACIL. [Concomitant]
     Active Substance: FLUOROURACIL
     Dosage: CONTINUOUS FOR 46 HOURS
     Route: 042
     Dates: start: 20200220
  52. FLUOROURACIL. [Concomitant]
     Active Substance: FLUOROURACIL
     Dosage: CONTINUOUS FOR 46 HOURS
     Route: 042
     Dates: start: 20200616
  53. FLUOROURACIL. [Concomitant]
     Active Substance: FLUOROURACIL
     Dosage: CONTINUOUS FOR 46 HOURS
     Route: 042
     Dates: start: 20201104
  54. OXALIPLATIN. [Concomitant]
     Active Substance: OXALIPLATIN
     Dosage: DAY1
     Dates: start: 20200404
  55. FLUOROURACIL. [Concomitant]
     Active Substance: FLUOROURACIL
     Dosage: DAY1
     Dates: start: 20200320
  56. FLUOROURACIL. [Concomitant]
     Active Substance: FLUOROURACIL
     Dosage: DAY1
     Dates: start: 20200530
  57. FLUOROURACIL. [Concomitant]
     Active Substance: FLUOROURACIL
     Dosage: CONTINUOUS FOR 46 HOURS
     Route: 042
     Dates: start: 20201014

REACTIONS (1)
  - Myelosuppression [Unknown]
